FAERS Safety Report 15272788 (Version 2)
Quarter: 2018Q3

REPORT INFORMATION
  Report Type: Report from Study
  Country: CN (occurrence: CN)
  Receive Date: 20180813
  Receipt Date: 20180831
  Transmission Date: 20181010
  Serious: Yes (Hospitalization, Other)
  Sender: FDA-Public Use
  Company Number: CN-SA-2018SA006718

PATIENT
  Age: 82 Year
  Sex: Male
  Weight: 55 kg

DRUGS (12)
  1. ALIROCUMAB [Suspect]
     Active Substance: ALIROCUMAB
     Indication: HYPERCHOLESTEROLAEMIA
     Dosage: 1 ML,QOW
     Route: 058
     Dates: start: 20170920
  2. GLICLAZIDE [Concomitant]
     Active Substance: GLICLAZIDE
     Indication: TYPE 2 DIABETES MELLITUS
     Dosage: UNK UNK,UNK
     Route: 065
     Dates: start: 20171031, end: 20180523
  3. PLACEBO [Suspect]
     Active Substance: UNSPECIFIED INGREDIENT
     Indication: HYPERCHOLESTEROLAEMIA
     Dosage: 10 MG,QD
     Route: 048
     Dates: start: 20170920
  4. ALIROCUMAB PREFILLED PEN [Suspect]
     Active Substance: ALIROCUMAB
     Indication: HYPERCHOLESTEROLAEMIA
     Dosage: 1 ML, QOW
     Route: 058
     Dates: start: 20170920
  5. ROSUVASTATIN. [Suspect]
     Active Substance: ROSUVASTATIN
     Indication: HYPERCHOLESTEROLAEMIA
     Dosage: 20 MG,QD
     Route: 048
     Dates: start: 201504, end: 20171130
  6. METOPROLOL SUCCINATE. [Concomitant]
     Active Substance: METOPROLOL SUCCINATE
     Indication: ARTERIOSCLEROSIS CORONARY ARTERY
     Dosage: UNK UNK,UNK
     Route: 065
     Dates: start: 20150519, end: 20180523
  7. ACETYLSALICYLIC ACID [Concomitant]
     Active Substance: ASPIRIN
     Indication: ARTERIOSCLEROSIS CORONARY ARTERY
     Dosage: UNK UNK,UNK
     Route: 065
     Dates: start: 20140506, end: 20171228
  8. CLOPIDOGREL BISULFATE. [Concomitant]
     Active Substance: CLOPIDOGREL BISULFATE
     Indication: ARTERIOSCLEROSIS CORONARY ARTERY
     Dosage: UNK UNK,UNK
     Route: 065
     Dates: start: 20140506, end: 20171228
  9. ROSUVASTATIN. [Suspect]
     Active Substance: ROSUVASTATIN
     Dosage: 20 UNK
     Route: 048
     Dates: start: 20180106, end: 20180523
  10. PERINDOPRIL [Concomitant]
     Active Substance: PERINDOPRIL
     Indication: ARTERIOSCLEROSIS CORONARY ARTERY
     Dosage: UNK UNK,UNK
     Route: 065
     Dates: start: 20161108, end: 20180523
  11. ROSUVASTATIN. [Suspect]
     Active Substance: ROSUVASTATIN
     Dosage: 20 MG,QD
     Route: 048
     Dates: start: 20171202, end: 20180104
  12. ROSUVASTATIN. [Suspect]
     Active Substance: ROSUVASTATIN
     Dosage: 10 UNK, UNK
     Route: 048
     Dates: start: 20180611

REACTIONS (1)
  - Prostate cancer [Recovered/Resolved]

NARRATIVE: CASE EVENT DATE: 20171209
